FAERS Safety Report 14282454 (Version 1)
Quarter: 2017Q4

REPORT INFORMATION
  Report Type: Spontaneous
  Country: US (occurrence: US)
  Receive Date: 20171213
  Receipt Date: 20171213
  Transmission Date: 20180321
  Serious: No
  Sender: FDA-Public Use
  Company Number: US-MALLINCKRODT-T201700357

PATIENT
  Age: 75 Year
  Sex: Female
  Weight: 65 kg

DRUGS (8)
  1. BENAZEPRIL [Concomitant]
     Active Substance: BENAZEPRIL HYDROCHLORIDE
     Dosage: 40 MG
  2. FENTANYL TRANSDERMAL SYSTEM [Suspect]
     Active Substance: FENTANYL
     Indication: BACK PAIN
     Dosage: 100 MCG/HR, Q3D
     Route: 062
     Dates: start: 2012
  3. ESTRADIOL. [Concomitant]
     Active Substance: ESTRADIOL
     Dosage: 1 MG
  4. PROGESTERONE. [Concomitant]
     Active Substance: PROGESTERONE
     Dosage: 200 MG
  5. FENTANYL TRANSDERMAL SYSTEM [Suspect]
     Active Substance: FENTANYL
     Dosage: 50 MCG/HR, Q3D
     Route: 062
     Dates: end: 201612
  6. BABY ASPIRIN [Concomitant]
     Active Substance: ASPIRIN
  7. FENTANYL TRANSDERMAL SYSTEM [Suspect]
     Active Substance: FENTANYL
     Dosage: 25 MCG/HR, Q3D
     Route: 062
     Dates: start: 201612
  8. HYDROCODONE [Concomitant]
     Active Substance: HYDROCODONE

REACTIONS (3)
  - Memory impairment [Not Recovered/Not Resolved]
  - Inappropriate schedule of drug administration [Not Recovered/Not Resolved]
  - Feeling cold [Unknown]

NARRATIVE: CASE EVENT DATE: 2015
